FAERS Safety Report 18236125 (Version 2)
Quarter: 2021Q1

REPORT INFORMATION
  Report Type: Spontaneous
  Country: DE (occurrence: DE)
  Receive Date: 20200906
  Receipt Date: 20210325
  Transmission Date: 20210419
  Serious: Yes (Other)
  Sender: FDA-Public Use
  Company Number: DE-UCBSA-2020034313

PATIENT
  Sex: Female

DRUGS (6)
  1. FYCOMPA [Suspect]
     Active Substance: PERAMPANEL
     Indication: PARTIAL SEIZURES
     Dosage: 6 MG DAILY
     Route: 048
     Dates: start: 201901, end: 2020
  2. LAMOTRIGINE. [Suspect]
     Active Substance: LAMOTRIGINE
     Indication: EPILEPSY
     Dosage: 480 MG
     Route: 048
     Dates: start: 201809, end: 2020
  3. LACOSAMIDE. [Suspect]
     Active Substance: LACOSAMIDE
     Indication: EPILEPSY
     Dosage: 300 MG (FREQUENCY UNKNOWN)
     Route: 048
     Dates: start: 2018, end: 2020
  4. LACOSAMIDE. [Suspect]
     Active Substance: LACOSAMIDE
     Dosage: DOSE UP?TITRATED (DOSE AND FREQUENCY UNKNOWN)
     Route: 048
     Dates: start: 2020
  5. LAMOTRIGINE. [Suspect]
     Active Substance: LAMOTRIGINE
     Dosage: DOSE UP?TITRATED (DOSE AND FREQUENCY UNKNOWN)
     Route: 048
     Dates: start: 2020
  6. FYCOMPA [Suspect]
     Active Substance: PERAMPANEL
     Indication: EPILEPSY
     Dosage: 8 MG DAILY
     Route: 048
     Dates: start: 2020

REACTIONS (4)
  - Generalised tonic-clonic seizure [Unknown]
  - Maternal exposure before pregnancy [Unknown]
  - Seizure [Unknown]
  - Prolonged pregnancy [Unknown]

NARRATIVE: CASE EVENT DATE: 2019
